FAERS Safety Report 6974324-8 (Version None)
Quarter: 2010Q3

REPORT INFORMATION
  Report Type: 
  Country: None (occurrence: None)
  Receive Date: 20100909
  Receipt Date: 20100830
  Transmission Date: 20110219
  Serious: Yes (Hospitalization)
  Sender: FDA-Public Use
  Company Number: PHHY2010SK57519

PATIENT
  Age: 29 Year
  Sex: Female

DRUGS (1)
  1. ZOLEDRONIC [Suspect]
     Dosage: UNK
     Dates: start: 20100714

REACTIONS (4)
  - CHEST PAIN [None]
  - CHILLS [None]
  - HEADACHE [None]
  - PYREXIA [None]
